FAERS Safety Report 10088138 (Version 1)
Quarter: 2014Q2

REPORT INFORMATION
  Report Type: Report from Study
  Country: US (occurrence: US)
  Receive Date: 20140421
  Receipt Date: 20140421
  Transmission Date: 20141212
  Serious: Yes (Other)
  Sender: FDA-Public Use
  Company Number: US-ROCHE-1381524

PATIENT
  Sex: 0

DRUGS (8)
  1. TRASTUZUMAB [Suspect]
     Indication: BREAST CANCER
     Dosage: MAINTENANCE THERAPY
     Route: 065
  2. DOXORUBICIN [Suspect]
     Indication: BREAST CANCER
     Route: 065
  3. CYCLOPHOSPHAMIDE [Suspect]
     Indication: BREAST CANCER
     Route: 065
  4. PACLITAXEL [Suspect]
     Indication: BREAST CANCER
     Route: 065
  5. PACLITAXEL [Suspect]
     Route: 065
  6. LAMIVUDINE [Concomitant]
     Route: 065
  7. ATAZANAVIR [Concomitant]
     Route: 065
  8. RITONAVIR [Concomitant]
     Route: 065

REACTIONS (3)
  - Ejection fraction decreased [Unknown]
  - Haematotoxicity [Unknown]
  - Infection [Unknown]
